FAERS Safety Report 9691566 (Version 2)
Quarter: 2013Q4

REPORT INFORMATION
  Report Type: Spontaneous
  Country: US (occurrence: US)
  Receive Date: 20131115
  Receipt Date: 20131115
  Transmission Date: 20140711
  Serious: Yes (Hospitalization)
  Sender: FDA-Public Use
  Company Number: US-BRISTOL-MYERS SQUIBB COMPANY-18803882

PATIENT
  Age: 71 Year
  Sex: Female
  Weight: 68.03 kg

DRUGS (10)
  1. BYETTA [Suspect]
     Indication: TYPE 2 DIABETES MELLITUS
     Dosage: 2003-2006,5MCG/DQ INJ BID ?2006-2009?28MAR13:SQ INJ BID ON 28MAR2013
     Route: 058
     Dates: start: 2003
  2. METFORMIN HCL [Suspect]
     Route: 048
  3. GLUCOTROL XL [Suspect]
     Route: 048
  4. BENICAR [Concomitant]
     Route: 048
  5. VERAPAMIL SR [Concomitant]
     Route: 048
  6. SIMVASTATIN [Concomitant]
     Route: 048
  7. FUROSEMIDE [Concomitant]
  8. MELOXICAM [Concomitant]
     Route: 048
  9. OMEPRAZOLE [Concomitant]
     Route: 048
  10. VICODIN [Concomitant]
     Indication: PAIN
     Route: 048

REACTIONS (5)
  - Amylase increased [Unknown]
  - Lipase increased [Unknown]
  - Dyspepsia [Unknown]
  - Blood glucose fluctuation [Unknown]
  - Weight decreased [Unknown]
